FAERS Safety Report 24628519 (Version 2)
Quarter: 2024Q4

REPORT INFORMATION
  Report Type: Spontaneous
  Country: GB (occurrence: GB)
  Receive Date: 20241117
  Receipt Date: 20241122
  Transmission Date: 20250115
  Serious: Yes (Hospitalization)
  Sender: STRIDES
  Company Number: GB-STRIDES ARCOLAB LIMITED-2024SP014382

PATIENT

DRUGS (8)
  1. COLCHICINE [Suspect]
     Active Substance: COLCHICINE
     Indication: Gout
     Dosage: UNK (2 TABLETS TO START WITH, ONE TABLET AN HOUR LATER, NO TABLET FOR 12 HOURS AND THEN TWICE THE NE
     Route: 048
     Dates: start: 20241007, end: 20241010
  2. COLCHICINE [Suspect]
     Active Substance: COLCHICINE
     Dosage: UNK (2 TABLETS TO START WITH, ONE TABLET AN HOUR LATER, NO TABLET FOR 12 HOURS AND THEN TWICE THE NE
     Route: 048
     Dates: start: 20241020
  3. MONTELUKAST [Concomitant]
     Active Substance: MONTELUKAST
     Indication: Asthma
     Dosage: 10 MILLIGRAM, AT BED TIME (ONCE A NIGHT)
     Route: 048
  4. LISINOPRIL [Concomitant]
     Active Substance: LISINOPRIL
     Indication: Hypertension
     Dosage: 2.5 MILLIGRAM, OD
     Route: 048
  5. FEXOFENADINE [Concomitant]
     Active Substance: FEXOFENADINE HYDROCHLORIDE
     Indication: Seasonal allergy
     Dosage: 120 MILLIGRAM, OD
     Route: 048
  6. FLUTICASONE FUROATE\SALMETEROL XINAFOATE [Concomitant]
     Active Substance: FLUTICASONE FUROATE\SALMETEROL XINAFOATE
     Indication: Asthma
     Dosage: UNK, BID (1-2PUFFS/INHALED/TWICE DAILY)
  7. VENTOLIN [Concomitant]
     Active Substance: ALBUTEROL SULFATE
     Indication: Asthma
     Dosage: UNK, PRN (1-2PUFFS/INHALED/FOUR DAILY AS REQUIRED TIMES)
  8. MOMETASONE [Concomitant]
     Active Substance: MOMETASONE
     Indication: Sinusitis
     Dosage: UNK, PRN (TO BE USED AS RECOMMENDED BY ENT SPECIALIST)
     Route: 045

REACTIONS (3)
  - Diarrhoea [Recovered/Resolved]
  - Overdose [Unknown]
  - Influenza like illness [Unknown]

NARRATIVE: CASE EVENT DATE: 20241001
